FAERS Safety Report 5892959-0 (Version None)
Quarter: 2008Q3

REPORT INFORMATION
  Report Type: 
  Country: None (occurrence: None)
  Receive Date: 20080922
  Receipt Date: 20080922
  Transmission Date: 20090109
  Serious: Yes (Life-Threatening, Hospitalization)
  Sender: FDA-Public Use
  Company Number: None

PATIENT
  Age: 66 Year
  Sex: Male
  Weight: 88.905 kg

DRUGS (1)
  1. LEUKERAN [Suspect]
     Indication: RENAL DISORDER
     Dates: start: 20030807, end: 20030807

REACTIONS (2)
  - APPARENT DEATH [None]
  - DYSPNOEA [None]
